FAERS Safety Report 6040222-X (Version None)
Quarter: 2009Q1

REPORT INFORMATION
  Report Type: 
  Country: None (occurrence: None)
  Receive Date: 20090116
  Receipt Date: 20080627
  Transmission Date: 20090719
  Serious: No
  Sender: FDA-Public Use
  Company Number: US-BRISTOL-MYERS SQUIBB COMPANY-14045272

PATIENT
  Age: 78 Year
  Sex: Female
  Weight: 60 kg

DRUGS (6)
  1. ABILIFY [Suspect]
     Indication: DEPRESSION
     Route: 048
     Dates: start: 20050418
  2. ABILIFY [Suspect]
     Indication: BIPOLAR DISORDER
     Route: 048
     Dates: start: 20050418
  3. TRAZODONE HCL [Concomitant]
  4. XANAX [Concomitant]
  5. LAMICTAL [Concomitant]
  6. PLENDIL [Concomitant]

REACTIONS (7)
  - BALANCE DISORDER [None]
  - DRY EYE [None]
  - DRY MOUTH [None]
  - DYSPEPSIA [None]
  - HEARING IMPAIRED [None]
  - TARDIVE DYSKINESIA [None]
  - VISION BLURRED [None]
